FAERS Safety Report 14203434 (Version 1)
Quarter: 2017Q4

REPORT INFORMATION
  Report Type: Spontaneous
  Country: US (occurrence: US)
  Receive Date: 20171120
  Receipt Date: 20171120
  Transmission Date: 20180321
  Serious: No
  Sender: FDA-Public Use
  Company Number: US-SHIRE-US201723282

PATIENT

DRUGS (10)
  1. LIALDA [Suspect]
     Active Substance: MESALAMINE
     Dosage: UNK
  2. LIALDA [Suspect]
     Active Substance: MESALAMINE
     Dosage: UNK
  3. LIALDA [Suspect]
     Active Substance: MESALAMINE
     Dosage: UNK
  4. LIALDA [Suspect]
     Active Substance: MESALAMINE
     Dosage: UNK
  5. LIALDA [Suspect]
     Active Substance: MESALAMINE
     Dosage: UNK
  6. LIALDA [Suspect]
     Active Substance: MESALAMINE
     Dosage: UNK
  7. LIALDA [Suspect]
     Active Substance: MESALAMINE
     Indication: PRODUCT USED FOR UNKNOWN INDICATION
     Dosage: 1.2 G, UNK
  8. LIALDA [Suspect]
     Active Substance: MESALAMINE
     Dosage: UNK
  9. LIALDA [Suspect]
     Active Substance: MESALAMINE
     Dosage: UNK
  10. LIALDA [Suspect]
     Active Substance: MESALAMINE
     Dosage: UNK

REACTIONS (2)
  - Faeces discoloured [Unknown]
  - Chromaturia [Unknown]
